FAERS Safety Report 23462917 (Version 2)
Quarter: 2024Q2

REPORT INFORMATION
  Report Type: Spontaneous
  Country: US (occurrence: US)
  Receive Date: 20240131
  Receipt Date: 20240418
  Transmission Date: 20240716
  Serious: No
  Sender: FDA-Public Use
  Company Number: US-PFIZER INC-202300268286

PATIENT
  Age: 73 Year
  Sex: Female
  Weight: 100.2 kg

DRUGS (3)
  1. IBRANCE [Suspect]
     Active Substance: PALBOCICLIB
     Indication: Metastases to bone
     Dosage: ONE 125MG TABLET BY MOUTH ONCE A DAY FOR THREE WEEKS AND THEN OFF A WEEK
     Dates: start: 202311
  2. IBRANCE [Suspect]
     Active Substance: PALBOCICLIB
     Dosage: ONE 125MG TABLET BY MOUTH ONCE A DAY FOR THREE WEEKS AND THEN OFF A WEEK
     Dates: start: 20240115
  3. IBRANCE [Suspect]
     Active Substance: PALBOCICLIB
     Dosage: 100 MG

REACTIONS (2)
  - Full blood count abnormal [Recovered/Resolved]
  - Dry mouth [Recovering/Resolving]

NARRATIVE: CASE EVENT DATE: 20240108
